FAERS Safety Report 21207485 (Version 1)
Quarter: 2022Q3

REPORT INFORMATION
  Report Type: Spontaneous
  Country: MX (occurrence: MX)
  Receive Date: 20220812
  Receipt Date: 20220812
  Transmission Date: 20221026
  Serious: No
  Sender: FDA-Public Use
  Company Number: MX-PFIZER INC-PV202200034475

PATIENT
  Age: 14 Year
  Sex: Female

DRUGS (1)
  1. GENOTROPIN [Suspect]
     Active Substance: SOMATROPIN
     Dosage: UNK
     Route: 058
     Dates: start: 20170209

REACTIONS (4)
  - Device defective [Unknown]
  - Device breakage [Unknown]
  - Drug dose omission by device [Unknown]
  - Product dispensing issue [Unknown]
